FAERS Safety Report 8242681-0 (Version None)
Quarter: 2012Q1

REPORT INFORMATION
  Report Type: 
  Country: None (occurrence: None)
  Receive Date: 20120329
  Receipt Date: 20120320
  Transmission Date: 20120608
  Serious: Yes (Hospitalization, Other)
  Sender: FDA-Public Use
  Company Number: US-ELI_LILLY_AND_COMPANY-US201203006143

PATIENT
  Sex: Female

DRUGS (8)
  1. CALCIUM CARBONATE [Concomitant]
  2. ANTIHYPERTENSIVES [Concomitant]
     Indication: HYPERTENSION
  3. SYNTHROID [Concomitant]
  4. VITAMIN TAB [Concomitant]
  5. EVISTA [Suspect]
     Indication: OSTEOPOROSIS
     Dosage: 60 MG, QD
     Dates: start: 20040101, end: 20111103
  6. FISH OIL [Concomitant]
  7. MAGNESIUM [Concomitant]
  8. ANALGESICS [Concomitant]
     Indication: PAIN

REACTIONS (7)
  - TRANSFUSION [None]
  - FEMUR FRACTURE [None]
  - PAIN IN EXTREMITY [None]
  - ECCHYMOSIS [None]
  - OEDEMA PERIPHERAL [None]
  - HIP FRACTURE [None]
  - FALL [None]
